FAERS Safety Report 19086305 (Version 1)
Quarter: 2021Q2

REPORT INFORMATION
  Report Type: Spontaneous
  Country: US (occurrence: US)
  Receive Date: 20210401
  Receipt Date: 20210401
  Transmission Date: 20210717
  Serious: Yes (Other)
  Sender: FDA-Public Use
  Company Number: None

PATIENT
  Age: 43 Year
  Sex: Male
  Weight: 103.95 kg

DRUGS (13)
  1. ALLOPURINOL. [Concomitant]
     Active Substance: ALLOPURINOL
     Dates: start: 20210201, end: 20210203
  2. OXYCODONE IR [Concomitant]
     Active Substance: OXYCODONE
     Dates: start: 20210209, end: 20210215
  3. DIPHENHYDRAMINE. [Concomitant]
     Active Substance: DIPHENHYDRAMINE
     Dates: start: 20210201, end: 20210201
  4. POTASSIUM CHLORIDE. [Concomitant]
     Active Substance: POTASSIUM CHLORIDE
     Dates: start: 20210202, end: 20210213
  5. SUPERSATURATED CALCIUM PHOSPHATE RINSE [Concomitant]
     Dates: start: 20210201, end: 20210214
  6. CIPROFLOXACIN. [Concomitant]
     Active Substance: CIPROFLOXACIN
     Dates: start: 20210201, end: 20210215
  7. VALACYCLOVIR [Concomitant]
     Active Substance: VALACYCLOVIR HYDROCHLORIDE
     Dates: start: 20210201, end: 20210214
  8. TBO?FILGRASTIM [Concomitant]
     Active Substance: TBO-FILGRASTIM
     Dates: start: 20210204, end: 20210204
  9. CHLORHEXIDINE [Concomitant]
     Active Substance: CHLORHEXIDINE
     Dates: start: 20210201, end: 20210214
  10. URSODIOL. [Concomitant]
     Active Substance: URSODIOL
     Dates: start: 20210201, end: 20210203
  11. AXICABTAGENE CILOLEUCEL [Suspect]
     Active Substance: AXICABTAGENE CILOLEUCEL
     Indication: DIFFUSE LARGE B-CELL LYMPHOMA
     Dosage: ?          OTHER FREQUENCY:ONCE;?
     Route: 041
     Dates: start: 20210201, end: 20210201
  12. BUTALBITAL?ACETAMINOPHEN?CAFFEINE [Concomitant]
     Active Substance: ACETAMINOPHEN\BUTALBITAL\CAFFEINE
     Dates: start: 20210210, end: 20210210
  13. FLUCONAZOLE. [Concomitant]
     Active Substance: FLUCONAZOLE
     Dates: start: 20210201, end: 20210215

REACTIONS (1)
  - Cytokine release syndrome [None]

NARRATIVE: CASE EVENT DATE: 20210210
